FAERS Safety Report 12591777 (Version 1)
Quarter: 2016Q3

REPORT INFORMATION
  Report Type: Spontaneous
  Country: DE (occurrence: DE)
  Receive Date: 20160726
  Receipt Date: 20160726
  Transmission Date: 20161109
  Serious: Yes (Other)
  Sender: FDA-Public Use
  Company Number: DE-DRREDDYS-GER/GER/16/0081546

PATIENT
  Age: 46 Year
  Sex: Female
  Weight: 55 kg

DRUGS (2)
  1. IBUPROFEN. [Suspect]
     Active Substance: IBUPROFEN
     Indication: INFECTION
     Dosage: TAKING AS NEEDED
     Route: 048
  2. TECFIDERA [Suspect]
     Active Substance: DIMETHYL FUMARATE
     Indication: MULTIPLE SCLEROSIS
     Route: 048

REACTIONS (5)
  - Hypersensitivity [Recovered/Resolved]
  - Erythema [Recovered/Resolved]
  - Eye swelling [Recovered/Resolved]
  - Ear swelling [Recovered/Resolved]
  - Lip swelling [Recovered/Resolved]

NARRATIVE: CASE EVENT DATE: 20160624
